FAERS Safety Report 9250029 (Version 2)
Quarter: 2013Q2

REPORT INFORMATION
  Report Type: Spontaneous
  Country: US (occurrence: US)
  Receive Date: 20130424
  Receipt Date: 20130513
  Transmission Date: 20140414
  Serious: Yes (Other)
  Sender: FDA-Public Use
  Company Number: US-ROCHE-1016849

PATIENT
  Sex: Female
  Weight: 63.56 kg

DRUGS (1)
  1. ACCUTANE [Suspect]
     Indication: ACNE
     Route: 065
     Dates: start: 1997

REACTIONS (8)
  - Crohn^s disease [Unknown]
  - Depression [Unknown]
  - Inflammatory bowel disease [Unknown]
  - Arthritis [Unknown]
  - Anal fissure [Unknown]
  - Irritable bowel syndrome [Unknown]
  - Drug hypersensitivity [Unknown]
  - Erythema nodosum [Unknown]
